FAERS Safety Report 13512665 (Version 2)
Quarter: 2017Q4

REPORT INFORMATION
  Report Type: Spontaneous
  Country: US (occurrence: US)
  Receive Date: 20170504
  Receipt Date: 20171129
  Transmission Date: 20180320
  Serious: Yes (Hospitalization)
  Sender: FDA-Public Use
  Company Number: US-BAYER-2017-084807

PATIENT
  Age: 26 Year
  Sex: Male

DRUGS (3)
  1. IMMUNOGLOBULIN NOS [Concomitant]
     Active Substance: IMMUNE GLOBULIN NOS
     Dosage: UNK
  2. AMPYRA [Concomitant]
     Active Substance: DALFAMPRIDINE
     Indication: GAIT DISTURBANCE
     Dosage: 10 MG, BID
     Route: 048
  3. BETASERON [Suspect]
     Active Substance: INTERFERON BETA-1B
     Indication: MULTIPLE SCLEROSIS
     Dosage: 0.3 MG, QOD
     Dates: start: 201608, end: 201707

REACTIONS (9)
  - Hypoaesthesia [Recovering/Resolving]
  - Musculoskeletal stiffness [Recovering/Resolving]
  - Balance disorder [Recovering/Resolving]
  - Drug ineffective [None]
  - Multiple sclerosis relapse [Recovering/Resolving]
  - Seasonal allergy [None]
  - Muscular weakness [Recovering/Resolving]
  - Hemiparaesthesia [Recovering/Resolving]
  - Urinary tract infection [None]

NARRATIVE: CASE EVENT DATE: 201705
